FAERS Safety Report 10646530 (Version 1)
Quarter: 2014Q4

REPORT INFORMATION
  Report Type: Spontaneous
  Country: DK (occurrence: DK)
  Receive Date: 20141211
  Receipt Date: 20141211
  Transmission Date: 20150529
  Serious: Yes (Other)
  Sender: FDA-Public Use
  Company Number: DK-GLAXOSMITHKLINE-DK2014GSK031821

PATIENT
  Age: 53 Year
  Sex: Female

DRUGS (3)
  1. KODIMAGNYL [Concomitant]
  2. OXABENZ [Concomitant]
     Active Substance: OXAZEPAM
  3. IMIGRAN [Suspect]
     Active Substance: SUMATRIPTAN SUCCINATE
     Indication: PRODUCT USED FOR UNKNOWN INDICATION
     Dosage: UNK
     Dates: start: 2004

REACTIONS (6)
  - Glaucoma surgery [Unknown]
  - Vision blurred [Unknown]
  - Visual impairment [Unknown]
  - Eye pain [Unknown]
  - Cerebral ischaemia [Unknown]
  - Fatigue [Unknown]

NARRATIVE: CASE EVENT DATE: 2007
